FAERS Safety Report 5366569-8 (Version None)
Quarter: 2007Q2

REPORT INFORMATION
  Report Type: 
  Country: None (occurrence: None)
  Receive Date: 20070622
  Receipt Date: 20070607
  Transmission Date: 20071010
  Serious: No
  Sender: FDA-Public Use
  Company Number: FR-PFIZER INC-2007048246

PATIENT
  Sex: Female
  Weight: 63 kg

DRUGS (1)
  1. CHAMPIX [Suspect]
     Indication: SMOKING CESSATION THERAPY
     Dosage: FREQ:DAILY
     Route: 048
     Dates: start: 20070308, end: 20070325

REACTIONS (3)
  - MEMORY IMPAIRMENT [None]
  - PERSONALITY CHANGE [None]
  - SLEEP DISORDER [None]
